FAERS Safety Report 8219875-3 (Version None)
Quarter: 2012Q1

REPORT INFORMATION
  Report Type: 
  Country: None (occurrence: None)
  Receive Date: 20120319
  Receipt Date: 20120308
  Transmission Date: 20120608
  Serious: Yes (Other)
  Sender: FDA-Public Use
  Company Number: US-ASTRAZENECA-2010SE58505

PATIENT
  Age: 91 Year
  Sex: Female

DRUGS (1)
  1. TOPROL-XL [Suspect]
     Route: 048

REACTIONS (5)
  - MALAISE [None]
  - CONTUSION [None]
  - BRONCHITIS [None]
  - NASOPHARYNGITIS [None]
  - EMPHYSEMA [None]
